FAERS Safety Report 7524961-7 (Version None)
Quarter: 2011Q2

REPORT INFORMATION
  Report Type: 
  Country: None (occurrence: None)
  Receive Date: 20110526
  Receipt Date: 20110513
  Transmission Date: 20111010
  Serious: Yes (Other)
  Sender: FDA-Public Use
  Company Number: 2011AP000889

PATIENT
  Sex: Male

DRUGS (1)
  1. LOSARTAN POTASSIUM [Suspect]
     Indication: HYPERTENSION
     Dosage: 0.5 TAB, QD, PO
     Route: 048
     Dates: start: 20101101

REACTIONS (3)
  - LOSS OF CONSCIOUSNESS [None]
  - INSOMNIA [None]
  - ANXIETY [None]
